FAERS Safety Report 7969350-6 (Version None)
Quarter: 2011Q4

REPORT INFORMATION
  Report Type: 
  Country: None (occurrence: None)
  Receive Date: 20111210
  Receipt Date: 20111202
  Transmission Date: 20120403
  Serious: Yes (Other)
  Sender: FDA-Public Use
  Company Number: US-ASTRAZENECA-2011SE73518

PATIENT
  Age: 60 Year
  Sex: Female

DRUGS (3)
  1. SEROQUEL XR [Suspect]
     Indication: ANXIETY
     Dosage: TWO 300 MG TABLETS
     Route: 048
  2. SEROQUEL XR [Suspect]
     Indication: POST-TRAUMATIC STRESS DISORDER
     Dosage: TWO 300 MG TABLETS
     Route: 048
  3. SEROQUEL XR [Suspect]
     Indication: BIPOLAR DISORDER
     Dosage: TWO 300 MG TABLETS
     Route: 048

REACTIONS (2)
  - NEOPLASM MALIGNANT [None]
  - OFF LABEL USE [None]
